FAERS Safety Report 5592522-5 (Version None)
Quarter: 2008Q1

REPORT INFORMATION
  Report Type: 
  Country: None (occurrence: None)
  Receive Date: 20080111
  Receipt Date: 20080108
  Transmission Date: 20080703
  Serious: Yes (Hospitalization)
  Sender: FDA-Public Use
  Company Number: 2007SP024974

PATIENT
  Age: 54 Year
  Sex: Male

DRUGS (15)
  1. TEMODAL [Suspect]
     Indication: GLIOBLASTOMA
     Dosage: SEE IMAGE
     Route: 048
     Dates: start: 20070907, end: 20070911
  2. TEMODAL [Suspect]
     Indication: GLIOBLASTOMA
     Dosage: SEE IMAGE
     Route: 048
     Dates: start: 20070921, end: 20070925
  3. TEMODAL [Suspect]
     Indication: GLIOBLASTOMA
     Dosage: SEE IMAGE
     Route: 048
     Dates: start: 20071031, end: 20071106
  4. TEMODAL [Suspect]
     Indication: GLIOBLASTOMA
     Dosage: SEE IMAGE
     Route: 048
     Dates: start: 20071108, end: 20071112
  5. TEMODAL [Suspect]
     Indication: GLIOBLASTOMA
     Dosage: SEE IMAGE
     Route: 048
     Dates: start: 20071115, end: 20071120
  6. CARBOPLATIN [Suspect]
     Indication: GLIOBLASTOMA
     Dosage: 440 MG;ONCE;IV : 80 MG;ONCE;IV : 80 MG;ONCE;IV : 82 MG;ONCE;IV
     Route: 042
     Dates: start: 20070920, end: 20070920
  7. CARBOPLATIN [Suspect]
     Indication: GLIOBLASTOMA
     Dosage: 440 MG;ONCE;IV : 80 MG;ONCE;IV : 80 MG;ONCE;IV : 82 MG;ONCE;IV
     Route: 042
     Dates: start: 20071031, end: 20071031
  8. CARBOPLATIN [Suspect]
     Indication: GLIOBLASTOMA
     Dosage: 440 MG;ONCE;IV : 80 MG;ONCE;IV : 80 MG;ONCE;IV : 82 MG;ONCE;IV
     Route: 042
     Dates: start: 20071107, end: 20071107
  9. CARBOPLATIN [Suspect]
     Indication: GLIOBLASTOMA
     Dosage: 440 MG;ONCE;IV : 80 MG;ONCE;IV : 80 MG;ONCE;IV : 82 MG;ONCE;IV
     Route: 042
     Dates: start: 20071115, end: 20071115
  10. MEDROL [Concomitant]
  11. MOPRAL [Concomitant]
  12. FOSAMAX [Concomitant]
  13. CACIT D3 [Concomitant]
  14. LEDERFOLINE [Concomitant]
  15. BACTRIM [Concomitant]

REACTIONS (7)
  - AGRANULOCYTOSIS [None]
  - ANAEMIA [None]
  - BODY TEMPERATURE INCREASED [None]
  - BONE MARROW FAILURE [None]
  - EPISTAXIS [None]
  - LEUKOPENIA [None]
  - THROMBOCYTOPENIA [None]
